FAERS Safety Report 13775152 (Version 1)
Quarter: 2017Q3

REPORT INFORMATION
  Report Type: Spontaneous
  Country: SA (occurrence: SA)
  Receive Date: 20170721
  Receipt Date: 20170721
  Transmission Date: 20171127
  Serious: Yes (Other)
  Sender: FDA-Public Use
  Company Number: SA-EDENBRIDGE PHARMACEUTICALS, LLC-SA-2017EDE000102

PATIENT

DRUGS (5)
  1. METHOTREXATE. [Suspect]
     Active Substance: METHOTREXATE
     Indication: B-CELL LYMPHOMA
     Dosage: UNK
  2. PREDNISOLONE SODIUM PHOSPHATE. [Suspect]
     Active Substance: PREDNISOLONE SODIUM PHOSPHATE
     Indication: B-CELL LYMPHOMA
     Dosage: UNK
  3. DOXORUBICIN [Suspect]
     Active Substance: DOXORUBICIN
     Indication: B-CELL LYMPHOMA
     Dosage: UNK
  4. VINCRISTINE [Suspect]
     Active Substance: VINCRISTINE
     Indication: B-CELL LYMPHOMA
     Dosage: UNK
  5. CYCLOPHOSPHAMIDE. [Suspect]
     Active Substance: CYCLOPHOSPHAMIDE
     Indication: B-CELL LYMPHOMA
     Dosage: UNK

REACTIONS (8)
  - Bone marrow failure [Recovered/Resolved]
  - Affect lability [Recovered/Resolved]
  - Hepatotoxicity [Recovered/Resolved]
  - Skin toxicity [Recovered/Resolved]
  - Mucosal toxicity [Recovered/Resolved]
  - Endocarditis bacterial [Recovered/Resolved]
  - Cholestasis [Recovered/Resolved]
  - Depression [Recovered/Resolved]
